FAERS Safety Report 13995000 (Version 1)
Quarter: 2017Q3

REPORT INFORMATION
  Report Type: Spontaneous
  Country: US (occurrence: US)
  Receive Date: 20170921
  Receipt Date: 20170921
  Transmission Date: 20171128
  Serious: Yes (Other)
  Sender: FDA-Public Use
  Company Number: US-ROCHE-1843623

PATIENT
  Sex: Female

DRUGS (8)
  1. BLACK COHOSH [Concomitant]
     Active Substance: BLACK COHOSH
  2. HERCEPTIN [Suspect]
     Active Substance: TRASTUZUMAB
     Route: 042
     Dates: start: 20140914
  3. TAXOL [Concomitant]
     Active Substance: PACLITAXEL
     Route: 065
  4. HERCEPTIN [Suspect]
     Active Substance: TRASTUZUMAB
     Route: 042
     Dates: start: 20140814
  5. HERCEPTIN [Suspect]
     Active Substance: TRASTUZUMAB
     Indication: HER-2 POSITIVE BREAST CANCER
     Route: 042
  6. RED CLOVER [Concomitant]
     Active Substance: RED CLOVER
  7. CARBOPLATIN. [Concomitant]
     Active Substance: CARBOPLATIN
  8. MILK THISTLE [Concomitant]
     Active Substance: MILK THISTLE

REACTIONS (4)
  - Injury [Unknown]
  - Gastrointestinal wall thickening [Unknown]
  - Renal cyst [Unknown]
  - Emotional distress [Unknown]
